FAERS Safety Report 7633428-7 (Version None)
Quarter: 2011Q3

REPORT INFORMATION
  Report Type: 
  Country: None (occurrence: None)
  Receive Date: 20110725
  Receipt Date: 20110712
  Transmission Date: 20111222
  Serious: Yes (Hospitalization, Congenital Anomaly, Other)
  Sender: FDA-Public Use
  Company Number: US-PFIZER INC-2011159667

PATIENT
  Sex: Male
  Weight: 3.6 kg

DRUGS (6)
  1. ZOLOFT [Suspect]
     Indication: DEPRESSION
     Dosage: 100 MG, UNK
     Route: 064
     Dates: start: 20080201
  2. CLEOCIN HYDROCHLORIDE [Concomitant]
     Dosage: 2% 5GM AT EVERY BEDTIME
     Route: 064
     Dates: start: 20070824
  3. ZOLOFT [Suspect]
     Dosage: 100MG HALF TABLET
     Route: 064
     Dates: start: 20080303
  4. FERROUS GLUCONATE [Concomitant]
     Dosage: 325 MG, 2X/DAY
     Route: 064
     Dates: start: 20080111
  5. ZOFRAN [Concomitant]
     Dosage: 8MG HALF TO ONE TABLET THREE TIMES A DAY
     Route: 064
     Dates: start: 20080122
  6. GLUCOPHAGE [Concomitant]
     Dosage: 859 MG, 2X/DAY
     Route: 064
     Dates: start: 20080118

REACTIONS (3)
  - ADENOIDAL HYPERTROPHY [None]
  - MATERNAL EXPOSURE DURING PREGNANCY [None]
  - TALIPES [None]
